FAERS Safety Report 13601325 (Version 1)
Quarter: 2017Q2

REPORT INFORMATION
  Report Type: Spontaneous
  Country: US (occurrence: US)
  Receive Date: 20170601
  Receipt Date: 20170601
  Transmission Date: 20170830
  Serious: No
  Sender: FDA-Public Use
  Company Number: None

PATIENT
  Age: 68 Year
  Sex: Female
  Weight: 58.5 kg

DRUGS (1)
  1. HYDROCODONE DASH ACETAMINOPHEN [Suspect]
     Active Substance: ACETAMINOPHEN\HYDROCODONE BITARTRATE
     Indication: TOOTHACHE
     Route: 048

REACTIONS (4)
  - Vomiting [None]
  - Headache [None]
  - Product physical issue [None]
  - Drug ineffective [None]

NARRATIVE: CASE EVENT DATE: 20170601
